FAERS Safety Report 15791767 (Version 1)
Quarter: 2019Q1

REPORT INFORMATION
  Report Type: Spontaneous
  Country: NL (occurrence: NL)
  Receive Date: 20190105
  Receipt Date: 20190105
  Transmission Date: 20190417
  Serious: Yes (Other)
  Sender: FDA-Public Use
  Company Number: NL-ACCORD-100844

PATIENT
  Age: 75 Year
  Sex: Female
  Weight: 100 kg

DRUGS (6)
  1. PANTOPRAZOLE [Concomitant]
     Active Substance: PANTOPRAZOLE
     Dosage: 40 MG 1 X PER DAY
  2. ACENOCOUMAROL [Concomitant]
     Active Substance: ACENOCOUMAROL
  3. AMLODIPINE [Suspect]
     Active Substance: AMLODIPINE BESYLATE
     Indication: HYPERTENSION
     Dosage: 1X PER DAY, STRENGTH: 5 MG
     Dates: start: 20180305, end: 20180423
  4. PERINDOPRIL/PERINDOPRIL ERBUMINE [Concomitant]
     Dosage: 2 TIMES A DAY
  5. BISOPROLOL [Concomitant]
     Active Substance: BISOPROLOL
  6. AMIODARONE [Concomitant]
     Active Substance: AMIODARONE
     Dosage: 200 MG HALF TABLET

REACTIONS (8)
  - Syncope [Unknown]
  - Glaucoma [Unknown]
  - Dizziness [Unknown]
  - Chest pain [Unknown]
  - Pruritus [Unknown]
  - Gingival swelling [Unknown]
  - Nausea [Unknown]
  - Flushing [Unknown]

NARRATIVE: CASE EVENT DATE: 20180305
